FAERS Safety Report 4846617-1 (Version None)
Quarter: 2005Q4

REPORT INFORMATION
  Report Type: 
  Country: None (occurrence: None)
  Receive Date: 20051202
  Receipt Date: 20051121
  Transmission Date: 20060501
  Serious: Yes (Disabling)
  Sender: FDA-Public Use
  Company Number: GXKR2005GB02008

PATIENT
  Age: 96 Year
  Sex: Female

DRUGS (7)
  1. CITALOPRAM HYDROBROMIDE [Suspect]
     Indication: DEPRESSION
     Dosage: 20 MG,QD, ORAL
     Route: 048
     Dates: start: 20050906, end: 20051024
  2. TRAMADOL HCL [Suspect]
     Indication: BACK PAIN
     Dosage: 100 MG, BID, ORAL
     Route: 048
     Dates: start: 20050906, end: 20051024
  3. ASPIRIN [Concomitant]
  4. FUROSEMIDE [Concomitant]
  5. PROPRANOLOL [Concomitant]
  6. OMEPRAZOLE [Concomitant]
  7. PARACETAMOL (PARACETAMOL) [Concomitant]

REACTIONS (6)
  - DISORIENTATION [None]
  - DRUG INTERACTION [None]
  - FEAR [None]
  - FEELING ABNORMAL [None]
  - HALLUCINATION [None]
  - IMMOBILE [None]
